FAERS Safety Report 4389675-3 (Version None)
Quarter: 2004Q2

REPORT INFORMATION
  Report Type: 
  Country: None (occurrence: None)
  Receive Date: 20040629
  Receipt Date: 20031029
  Transmission Date: 20050107
  Serious: Yes (Other)
  Sender: FDA-Public Use
  Company Number: US-JNJFOC-20031006490

PATIENT
  Age: 49 Year
  Sex: Male

DRUGS (3)
  1. DURAGESIC [Suspect]
     Indication: PAIN
     Dosage: 50 UG/HR, 1 IN 72 HOUR, TRANSDERMAL
     Route: 062
     Dates: start: 20020101
  2. URSO [Concomitant]
  3. PLETAL [Concomitant]

REACTIONS (5)
  - CHOKING [None]
  - DRUG ABUSER [None]
  - HOARSENESS [None]
  - MIOSIS [None]
  - OXYGEN SATURATION DECREASED [None]
